FAERS Safety Report 10200902 (Version 1)
Quarter: 2014Q2

REPORT INFORMATION
  Report Type: Spontaneous
  Country: CA (occurrence: CA)
  Receive Date: 20140528
  Receipt Date: 20140528
  Transmission Date: 20141212
  Serious: Yes (Other)
  Sender: FDA-Public Use
  Company Number: CA-MYLANLABS-2014S1011777

PATIENT
  Age: 60 Year
  Sex: Female

DRUGS (1)
  1. AZITHROMYCIN [Suspect]
     Indication: PHARYNGITIS
     Route: 065

REACTIONS (1)
  - Drug reaction with eosinophilia and systemic symptoms [Unknown]
